FAERS Safety Report 12683725 (Version 1)
Quarter: 2016Q3

REPORT INFORMATION
  Report Type: Spontaneous
  Country: US (occurrence: US)
  Receive Date: 20160825
  Receipt Date: 20160825
  Transmission Date: 20161109
  Serious: Yes (Other)
  Sender: FDA-Public Use
  Company Number: US-DEPOMED, INC.-US-2016DEP011759

PATIENT

DRUGS (1)
  1. GRALISE [Suspect]
     Active Substance: GABAPENTIN
     Indication: COMPLEX REGIONAL PAIN SYNDROME
     Dosage: 300 MG, QD, TITRATED TO 900 MG DAILY
     Route: 048
     Dates: start: 20160810, end: 20160814

REACTIONS (8)
  - Depressed level of consciousness [Recovered/Resolved]
  - Adverse event [Recovered/Resolved]
  - Somnolence [Not Recovered/Not Resolved]
  - Product use issue [Recovered/Resolved]
  - Poor quality sleep [Recovered/Resolved]
  - Sleep paralysis [Recovered/Resolved]
  - Hallucination [Recovered/Resolved]
  - Eye movement disorder [Recovered/Resolved]

NARRATIVE: CASE EVENT DATE: 20160810
